FAERS Safety Report 4269941-2 (Version None)
Quarter: 2004Q1

REPORT INFORMATION
  Report Type: 
  Country: None (occurrence: None)
  Receive Date: 20040112
  Receipt Date: 20031230
  Transmission Date: 20041129
  Serious: Yes (Hospitalization)
  Sender: FDA-Public Use
  Company Number: US-JNJFOC-20040100326

PATIENT
  Age: 67 Year
  Sex: Male
  Weight: 81.6475 kg

DRUGS (11)
  1. INFLIXIMAB (INFLIXIMAB, RECOMBINANT) LYOPHILIZED POWDER [Suspect]
     Indication: RHEUMATOID ARTHRITIS
     Dosage: 300 MG, INTRAVENOUS
     Route: 042
     Dates: start: 20021120
  2. FOSAMAX [Concomitant]
  3. FOLIC ACID [Concomitant]
  4. AVAPRO [Concomitant]
  5. LANOXIN [Concomitant]
  6. ISORDIL [Concomitant]
  7. IBUPROFEN [Concomitant]
  8. DOXAZOSIN MESYLATE [Concomitant]
  9. METHOTREXATE [Concomitant]
  10. COMBIVENT [Concomitant]
  11. ZOCOR [Concomitant]

REACTIONS (3)
  - AORTIC VALVE INCOMPETENCE [None]
  - CORONARY ARTERY OCCLUSION [None]
  - ISCHAEMIC CARDIOMYOPATHY [None]
